FAERS Safety Report 15461853 (Version 1)
Quarter: 2018Q4

REPORT INFORMATION
  Report Type: Spontaneous
  Country: US (occurrence: US)
  Receive Date: 20181003
  Receipt Date: 20181003
  Transmission Date: 20190204
  Serious: No
  Sender: FDA-Public Use
  Company Number: US-UPSHER-SMITH LABORATORIES, LLC-2018USL00231

PATIENT
  Age: 45 Year
  Sex: Male
  Weight: 74.83 kg

DRUGS (11)
  1. BACLOFEN. [Suspect]
     Active Substance: BACLOFEN
     Dosage: 30 MG, 4X/DAY
     Route: 048
     Dates: start: 201805, end: 20180604
  2. MULTIVITAMIN [Concomitant]
     Active Substance: VITAMINS
  3. OXYBUTYNIN. [Concomitant]
     Active Substance: OXYBUTYNIN CHLORIDE
  4. COMPOUNDED AMPYRA (A410) [Concomitant]
  5. VITAMIN B [Concomitant]
     Active Substance: VITAMIN B
  6. HYDROCODONE [Concomitant]
     Active Substance: HYDROCODONE
  7. TIZANIDINE. [Concomitant]
     Active Substance: TIZANIDINE
  8. MAGNESIUM [Concomitant]
     Active Substance: MAGNESIUM
  9. BACLOFEN. [Suspect]
     Active Substance: BACLOFEN
     Indication: MUSCLE SPASTICITY
     Dosage: 30 MG, 4X/DAY
     Route: 048
     Dates: start: 201805, end: 20180604
  10. ALEVE [Concomitant]
     Active Substance: NAPROXEN SODIUM
  11. VITAMIN D [Concomitant]
     Active Substance: CHOLECALCIFEROL

REACTIONS (3)
  - Product substitution issue [Recovered/Resolved]
  - Drug effect incomplete [Recovered/Resolved]
  - Prescribed overdose [Recovered/Resolved]

NARRATIVE: CASE EVENT DATE: 201805
